FAERS Safety Report 5057125-X (Version None)
Quarter: 2006Q2

REPORT INFORMATION
  Report Type: 
  Country: None (occurrence: None)
  Receive Date: 20060622
  Receipt Date: 20060105
  Transmission Date: 20061013
  Serious: Yes (Death)
  Sender: FDA-Public Use
  Company Number: US-JNJFOC-20050403336

PATIENT
  Age: 40 Year
  Sex: Female

DRUGS (15)
  1. DURAGESIC-100 [Suspect]
     Indication: PAIN
     Dosage: 75 UG/HR, 1 IN 72 HOUR, TRANSDERMAL
     Route: 062
     Dates: start: 20030422
  2. NORTRIPTYLINE HCL [Suspect]
     Indication: MIGRAINE
     Dosage: 75 MG
     Dates: start: 20020207
  3. NORTRIPTYLINE HCL [Suspect]
     Indication: PAIN
     Dosage: 75 MG
     Dates: start: 20020207
  4. PERCOCET [Suspect]
     Indication: PAIN
     Dosage: SEE IMAGE
     Dates: start: 20030327
  5. PERCOCET [Suspect]
     Indication: PAIN
     Dosage: SEE IMAGE
     Dates: start: 20030422
  6. VICODIN ES [Concomitant]
  7. LIDOCAINE (LIDOCAINE) OINTMENT [Concomitant]
  8. DEPO-PROVERA [Concomitant]
  9. PAXIL [Concomitant]
  10. DURICEF [Concomitant]
  11. ULTRACET [Concomitant]
  12. DIFLUCAN [Concomitant]
  13. LOTRISONE (LOTRISONE) CREAM [Concomitant]
  14. Z-PAC (AZITHROMYCIN) [Concomitant]
  15. METHYLPREDNISOLONE [Concomitant]

REACTIONS (1)
  - MULTIPLE DRUG OVERDOSE [None]
